FAERS Safety Report 5715988-6 (Version None)
Quarter: 2008Q2

REPORT INFORMATION
  Report Type: 
  Country: None (occurrence: None)
  Receive Date: 20080424
  Receipt Date: 20080416
  Transmission Date: 20081010
  Serious: Yes (Death)
  Sender: FDA-Public Use
  Company Number: DE-ELI_LILLY_AND_COMPANY-DE200804004370

PATIENT
  Age: 66 Year
  Sex: Male

DRUGS (3)
  1. CIALIS [Suspect]
     Dosage: 10 MG, UNKNOWN
     Route: 065
     Dates: start: 20060101
  2. LEVITRA [Concomitant]
     Dosage: UNK, UNKNOWN
     Route: 065
  3. VIAGRA [Concomitant]
     Dosage: UNK, UNKNOWN
     Route: 065

REACTIONS (2)
  - DEATH [None]
  - DRUG INTERACTION [None]
